FAERS Safety Report 9898475 (Version 6)
Quarter: 2014Q4

REPORT INFORMATION
  Report Type: Spontaneous
  Country: SE (occurrence: SE)
  Receive Date: 20140214
  Receipt Date: 20141215
  Transmission Date: 20150529
  Serious: Yes (Death, Life-Threatening, Hospitalization, Other)
  Sender: FDA-Public Use
  Company Number: SE-B.I. PHARMACEUTICALS,INC./RIDGEFIELD-2014-BI-06736SW

PATIENT
  Age: 65 Year
  Sex: Male

DRUGS (10)
  1. PRADAXA [Suspect]
     Active Substance: DABIGATRAN ETEXILATE MESYLATE
     Indication: ATRIAL FIBRILLATION
     Dosage: 150 MG
     Route: 048
     Dates: start: 2013, end: 20140212
  2. PRADAXA [Suspect]
     Active Substance: DABIGATRAN ETEXILATE MESYLATE
     Route: 048
     Dates: start: 20130213
  3. PRADAXA [Suspect]
     Active Substance: DABIGATRAN ETEXILATE MESYLATE
     Route: 048
     Dates: start: 20130215
  4. TRADOLAN [Concomitant]
     Active Substance: TRAMADOL
     Dosage: FORMULATION: FILM COATED
     Route: 065
  5. OXASCAND [Concomitant]
     Active Substance: OXAZEPAM
     Route: 065
  6. ORALOVITE [Concomitant]
     Route: 065
  7. ACETYLCYSTEIN [Concomitant]
     Active Substance: ACETYLCYSTEINE
     Route: 065
  8. DIGOXIN. [Concomitant]
     Active Substance: DIGOXIN
     Route: 065
  9. METOPROLOL [Concomitant]
     Active Substance: METOPROLOL
     Route: 065
  10. ENALAPRIL [Concomitant]
     Active Substance: ENALAPRIL
     Route: 065

REACTIONS (21)
  - Hypothermia [Fatal]
  - Shock [Fatal]
  - Circulatory collapse [Fatal]
  - Respiratory failure [Fatal]
  - Coagulation test abnormal [Fatal]
  - Loss of consciousness [Unknown]
  - Toxicity to various agents [Fatal]
  - Renal failure [Fatal]
  - Coagulopathy [Fatal]
  - Multi-organ failure [Fatal]
  - Thrombocytopenia [Fatal]
  - General physical health deterioration [Fatal]
  - Gastrointestinal haemorrhage [Fatal]
  - Lung disorder [Fatal]
  - Pleural effusion [Fatal]
  - Necrotising colitis [Fatal]
  - Depressed level of consciousness [Fatal]
  - Haemorrhoids [Fatal]
  - Dyspnoea [Fatal]
  - Gastrointestinal haemorrhage [Unknown]
  - Haemoglobin decreased [Unknown]

NARRATIVE: CASE EVENT DATE: 201402
